FAERS Safety Report 22655999 (Version 15)
Quarter: 2024Q3

REPORT INFORMATION
  Report Type: Spontaneous
  Country: US (occurrence: US)
  Receive Date: 20230629
  Receipt Date: 20240806
  Transmission Date: 20241016
  Serious: Yes (Hospitalization, Other)
  Sender: PFIZER
  Company Number: US-PFIZER INC-202300224886

PATIENT
  Age: 61 Year
  Sex: Female
  Weight: 68.04 kg

DRUGS (8)
  1. OXBRYTA [Suspect]
     Active Substance: VOXELOTOR
     Indication: Sickle cell disease
     Dosage: 900 MG, DAILY (300 MG, 3 TABS EVERY DAY)
     Route: 048
     Dates: start: 2021
  2. OXBRYTA [Suspect]
     Active Substance: VOXELOTOR
     Dosage: 1500 MG, 1X/DAY (500 MG 3 TABLETS ONCE DAILY)
     Route: 048
     Dates: start: 202107
  3. OXBRYTA [Suspect]
     Active Substance: VOXELOTOR
     Dosage: 1500 MG, DAILY
     Route: 048
  4. OXBRYTA [Suspect]
     Active Substance: VOXELOTOR
     Dosage: 900 MG, DAILY
     Route: 048
     Dates: start: 20230728
  5. OXBRYTA [Suspect]
     Active Substance: VOXELOTOR
     Dosage: 900 MG, DAILY
     Dates: start: 20230731
  6. OXBRYTA [Suspect]
     Active Substance: VOXELOTOR
     Dosage: 300 MG, 3 TABLETS BY MOUTH ONCE DAILY
     Route: 048
     Dates: start: 20230722
  7. OXBRYTA [Suspect]
     Active Substance: VOXELOTOR
     Dosage: 1500 MG, 1X/DAY (500MG 3 TABLETS ONCE DAILY)
     Route: 048
  8. HYDROXYUREA [Concomitant]
     Active Substance: HYDROXYUREA

REACTIONS (12)
  - Sickle cell anaemia with crisis [Recovered/Resolved]
  - Sickle cell disease [Not Recovered/Not Resolved]
  - Diarrhoea [Unknown]
  - Abdominal pain upper [Not Recovered/Not Resolved]
  - Abdominal discomfort [Not Recovered/Not Resolved]
  - Faeces soft [Not Recovered/Not Resolved]
  - Headache [Not Recovered/Not Resolved]
  - Abdominal pain [Unknown]
  - Fatigue [Recovered/Resolved]
  - Dysgeusia [Not Recovered/Not Resolved]
  - Dizziness [Unknown]
  - Haemoglobin decreased [Unknown]

NARRATIVE: CASE EVENT DATE: 20230801
